FAERS Safety Report 5852837-X (Version None)
Quarter: 2008Q3

REPORT INFORMATION
  Report Type: 
  Country: None (occurrence: None)
  Receive Date: 20080821
  Receipt Date: 20080811
  Transmission Date: 20090109
  Serious: Yes (Death, Hospitalization, Other)
  Sender: FDA-Public Use
  Company Number: FR-ELI_LILLY_AND_COMPANY-FR200808001877

PATIENT
  Sex: Female

DRUGS (2)
  1. GEMZAR [Suspect]
     Dosage: 1010 MG, UNKNOWN
     Route: 042
     Dates: start: 20071220, end: 20071220
  2. OXALIPLATIN [Concomitant]
     Dosage: 101.4 MG, UNK
     Route: 042
     Dates: start: 20071220, end: 20071220

REACTIONS (7)
  - ANAEMIA [None]
  - BICYTOPENIA [None]
  - GENERAL PHYSICAL HEALTH DETERIORATION [None]
  - HAEMORRHAGE [None]
  - MULTI-ORGAN FAILURE [None]
  - RENAL FAILURE ACUTE [None]
  - THROMBOCYTOPENIA [None]
